FAERS Safety Report 10031756 (Version 2)
Quarter: 2014Q1

REPORT INFORMATION
  Report Type: Report from Study
  Country: DE (occurrence: DE)
  Receive Date: 20140324
  Receipt Date: 20140324
  Transmission Date: 20141002
  Serious: Yes (Hospitalization, Other)
  Sender: FDA-Public Use
  Company Number: DE-SA-THYM-1003842

PATIENT
  Age: 42 Year
  Sex: Female
  Weight: 82 kg

DRUGS (5)
  1. THYMOGLOBULINE [Suspect]
     Indication: IMMUNOSUPPRESSION
     Dosage: 100 MG, QD
     Route: 042
     Dates: start: 20121111
  2. TACROLIMUS [Suspect]
     Indication: IMMUNOSUPPRESSION
     Dosage: 8 MG, QD
     Route: 048
     Dates: start: 20121111
  3. CELLCEPT [Suspect]
     Indication: IMMUNOSUPPRESSION
     Dosage: 500 MG, BID
     Route: 048
     Dates: start: 20121111
  4. PREDNISOLONE [Suspect]
     Indication: IMMUNOSUPPRESSION
     Dosage: 5 MG, QD
     Route: 048
     Dates: start: 20121111, end: 20121119
  5. PREDNISOLONE [Suspect]
     Indication: IMMUNOSUPPRESSION
     Dosage: 5 MG, QD
     Route: 048
     Dates: start: 20130302

REACTIONS (5)
  - Renal cyst [Recovered/Resolved]
  - Nephrectomy [Recovered/Resolved]
  - Abdominal pain [Unknown]
  - Nephrectomy [Recovered/Resolved]
  - Adhesiolysis [Recovered/Resolved]
